FAERS Safety Report 20979956 (Version 1)
Quarter: 2022Q2

REPORT INFORMATION
  Report Type: Spontaneous
  Country: AU (occurrence: AU)
  Receive Date: 20220620
  Receipt Date: 20220620
  Transmission Date: 20220720
  Serious: Yes (Life-Threatening, Hospitalization, Other)
  Sender: FDA-Public Use
  Company Number: AU-SUN PHARMACEUTICAL INDUSTRIES LTD-2022R1-341094

PATIENT
  Age: 43 Year
  Sex: Female
  Weight: 55 kg

DRUGS (3)
  1. CLONIDINE [Suspect]
     Active Substance: CLONIDINE
     Indication: Product used for unknown indication
     Dosage: UNK
     Route: 065
  2. ACETAMINOPHEN\CHLORPHENIRAMINE\DEXTROMETHORPHAN [Suspect]
     Active Substance: ACETAMINOPHEN\CHLORPHENIRAMINE\DEXTROMETHORPHAN
     Indication: Product used for unknown indication
     Dosage: UNK
     Route: 065
  3. THIAMINE [Concomitant]
     Active Substance: THIAMINE
     Indication: Product used for unknown indication
     Dosage: UNK
     Route: 065

REACTIONS (10)
  - Toxicity to various agents [Unknown]
  - Coma [Unknown]
  - Bradycardia [Unknown]
  - Overdose [Unknown]
  - Colitis [Unknown]
  - Acute hepatic failure [Recovered/Resolved]
  - Acute kidney injury [Recovered/Resolved]
  - Encephalopathy [Unknown]
  - Impaired gastric emptying [Unknown]
  - Malabsorption [Unknown]
